FAERS Safety Report 9709629 (Version 1)
Quarter: 2013Q4

REPORT INFORMATION
  Report Type: Spontaneous
  Country: NL (occurrence: NL)
  Receive Date: 20131126
  Receipt Date: 20131126
  Transmission Date: 20140711
  Serious: Yes (Life-Threatening, Hospitalization, Other)
  Sender: FDA-Public Use
  Company Number: NL-009507513-1311NLD007639

PATIENT
  Age: 67 Year
  Sex: Female

DRUGS (8)
  1. INEGY [Suspect]
     Indication: HYPERCHOLESTEROLAEMIA
     Dosage: 1 DF, QD
     Dates: start: 2010
  2. DOXYCYCLINE [Interacting]
     Indication: SINUSITIS
     Dosage: 100 MG, QD
     Dates: start: 20131001
  3. VENTOLIN (ALBUTEROL SULFATE) [Concomitant]
  4. METFORMIN [Concomitant]
     Dosage: 500 MG, BID
  5. SPIRIVA [Concomitant]
     Dosage: 1 DF, QD
  6. SERETIDE [Concomitant]
     Dosage: 1 DF, BID
  7. EUTHYROX [Concomitant]
     Dosage: 75 MICROGRAM, QD
     Route: 048
  8. PLANTAGO SEED [Concomitant]
     Dosage: 1 DF, QD

REACTIONS (2)
  - Drug interaction [Recovering/Resolving]
  - Pancreatitis [Recovering/Resolving]
